FAERS Safety Report 17508722 (Version 1)
Quarter: 2020Q1

REPORT INFORMATION
  Report Type: Spontaneous
  Country: US (occurrence: US)
  Receive Date: 20200305
  Receipt Date: 20200305
  Transmission Date: 20200409
  Serious: Yes (Disabling, Other)
  Sender: FDA-Public Use
  Company Number: None

PATIENT
  Age: 18 Year
  Sex: Male
  Weight: 78.3 kg

DRUGS (12)
  1. TRAMADOL. [Concomitant]
     Active Substance: TRAMADOL
  2. LEXAPRO [Concomitant]
     Active Substance: ESCITALOPRAM OXALATE
  3. DRONABINOL. [Concomitant]
     Active Substance: DRONABINOL
  4. SINGULAIR [Suspect]
     Active Substance: MONTELUKAST SODIUM
     Indication: HYPERSENSITIVITY
     Dosage: ?          QUANTITY:1 TABLET(S);?
     Route: 048
     Dates: start: 20080901, end: 20120601
  5. BUPROPRION [Concomitant]
     Active Substance: BUPROPION
  6. OXYCONTIN [Concomitant]
     Active Substance: OXYCODONE HYDROCHLORIDE
  7. ADDERALL [Concomitant]
     Active Substance: AMPHETAMINE ASPARTATE\AMPHETAMINE SULFATE\DEXTROAMPHETAMINE SACCHARATE\DEXTROAMPHETAMINE SULFATE
  8. KLONOPIN [Concomitant]
     Active Substance: CLONAZEPAM
  9. SINGULAIR [Suspect]
     Active Substance: MONTELUKAST SODIUM
     Indication: ASTHMA
     Dosage: ?          QUANTITY:1 TABLET(S);?
     Route: 048
     Dates: start: 20080901, end: 20120601
  10. AMBIEN [Concomitant]
     Active Substance: ZOLPIDEM TARTRATE
  11. VITAMIN D [Concomitant]
     Active Substance: VITAMIN D NOS
  12. XANAX [Concomitant]
     Active Substance: ALPRAZOLAM

REACTIONS (3)
  - Generalised anxiety disorder [None]
  - Major depression [None]
  - Insomnia [None]

NARRATIVE: CASE EVENT DATE: 20121130
